FAERS Safety Report 12252776 (Version 1)
Quarter: 2016Q2

REPORT INFORMATION
  Report Type: Spontaneous
  Country: None (occurrence: None)
  Receive Date: 20160408
  Receipt Date: 20160408
  Transmission Date: 20160815
  Serious: No
  Sender: FDA-Public Use
  Company Number: None

PATIENT
  Age: 47 Year
  Sex: Female
  Weight: 56.7 kg

DRUGS (1)
  1. SYSTANE ULTRA [Suspect]
     Active Substance: POLYETHYLENE GLYCOL 400\PROPYLENE GLYCOL
     Indication: DRY EYE
     Dosage: INTO THE EYE
     Route: 047
     Dates: start: 20160301, end: 20160401

REACTIONS (5)
  - Product packaging quantity issue [None]
  - Drug effect decreased [None]
  - Suspected counterfeit product [None]
  - Product lot number issue [None]
  - Product label issue [None]

NARRATIVE: CASE EVENT DATE: 20160314
